FAERS Safety Report 19121258 (Version 1)
Quarter: 2021Q2

REPORT INFORMATION
  Report Type: Spontaneous
  Country: US (occurrence: US)
  Receive Date: 20210412
  Receipt Date: 20210412
  Transmission Date: 20210717
  Serious: Yes (Hospitalization)
  Sender: FDA-Public Use
  Company Number: None

PATIENT
  Age: 74 Year
  Sex: Male

DRUGS (7)
  1. TACROLIMUS. [Suspect]
     Active Substance: TACROLIMUS
     Indication: TRANSPLANT
     Route: 048
  2. MYCOPHENOLIC [Suspect]
     Active Substance: MYCOPHENOLIC ACID
     Indication: TRANSPLANT
     Route: 048
  3. ATORVASTATIN [Concomitant]
     Active Substance: ATORVASTATIN
  4. CIMETIDINE [Concomitant]
     Active Substance: CIMETIDINE
  5. ALFUZOSIN [Concomitant]
     Active Substance: ALFUZOSIN
  6. CARB/LEVO [Concomitant]
     Active Substance: CARBIDOPA\LEVODOPA
  7. LEVETIRACETAM. [Concomitant]
     Active Substance: LEVETIRACETAM

REACTIONS (2)
  - Organ failure [None]
  - Therapy interrupted [None]

NARRATIVE: CASE EVENT DATE: 20210409
